FAERS Safety Report 9367123 (Version 1)
Quarter: 2013Q2

REPORT INFORMATION
  Report Type: Report from Study
  Country: FR (occurrence: FR)
  Receive Date: 20130625
  Receipt Date: 20130625
  Transmission Date: 20140414
  Serious: Yes (Death, Other)
  Sender: FDA-Public Use
  Company Number: FR-CELGENEUS-056-21880-13041087

PATIENT
  Age: 81 Year
  Sex: Female
  Weight: 40 kg

DRUGS (5)
  1. REVLIMID [Suspect]
     Indication: PLASMA CELL MYELOMA
     Dosage: 10 MILLIGRAM
     Route: 048
     Dates: start: 201205, end: 201207
  2. BINOCRIT [Concomitant]
     Indication: PRODUCT USED FOR UNKNOWN INDICATION
     Dosage: UNITS
     Route: 065
     Dates: start: 201206, end: 201207
  3. VELITREY [Concomitant]
     Indication: PRODUCT USED FOR UNKNOWN INDICATION
     Dosage: 1000 MILLIGRAM
     Route: 065
     Dates: start: 201205, end: 201207
  4. BACTRIM [Concomitant]
     Indication: PRODUCT USED FOR UNKNOWN INDICATION
     Dosage: 364.2857 MILLIGRAM
     Route: 065
     Dates: start: 201205, end: 201207
  5. INEXIUM [Concomitant]
     Indication: PRODUCT USED FOR UNKNOWN INDICATION
     Dosage: 40 MILLIGRAM
     Route: 065
     Dates: start: 201205, end: 201207

REACTIONS (6)
  - Septic shock [Fatal]
  - Completed suicide [Fatal]
  - Plasma cell myeloma [Fatal]
  - Haematotoxicity [Fatal]
  - Adverse event [Fatal]
  - Upper respiratory tract infection [Unknown]
